FAERS Safety Report 14183357 (Version 2)
Quarter: 2018Q2

REPORT INFORMATION
  Report Type: Report from Study
  Country: CA (occurrence: CA)
  Receive Date: 20171113
  Receipt Date: 20180504
  Transmission Date: 20180711
  Serious: Yes (Disabling, Other)
  Sender: FDA-Public Use
  Company Number: CA-JNJFOC-20171110201

PATIENT
  Sex: Female

DRUGS (2)
  1. SIMPONI [Suspect]
     Active Substance: GOLIMUMAB
     Indication: RHEUMATOID ARTHRITIS
     Dosage: STRENGTH = 50 MG
     Route: 058
  2. SIMPONI [Suspect]
     Active Substance: GOLIMUMAB
     Indication: CROHN^S DISEASE
     Dosage: STRENGTH = 50 MG
     Route: 058

REACTIONS (8)
  - Liver function test increased [Unknown]
  - Vestibular neuronitis [Not Recovered/Not Resolved]
  - Pruritus [Unknown]
  - Meniere^s disease [Unknown]
  - Abdominal distension [Unknown]
  - Peripheral swelling [Unknown]
  - Paraesthesia [Unknown]
  - Blood sodium increased [Unknown]

NARRATIVE: CASE EVENT DATE: 2017
